FAERS Safety Report 8777348 (Version 1)
Quarter: 2012Q4

REPORT INFORMATION
  Report Type: 
  Country: AU (occurrence: AU)
  Receive Date: 20120911
  Receipt Date: 20120911
  Transmission Date: 20130627
  Serious: Yes (Death)
  Sender: FDA-Public Use
  Company Number: AU-PFIZER INC-AU-WYE-G03513509

PATIENT
  Sex: Female

DRUGS (2)
  1. PRISTIQ [Suspect]
     Indication: DEPRESSION
     Dosage: 50 mg, UNK
     Route: 048
     Dates: start: 2009, end: 2009
  2. PRISTIQ [Suspect]
     Dosage: 100 mg, UNK
     Route: 048
     Dates: start: 2009

REACTIONS (1)
  - Completed suicide [Fatal]
